FAERS Safety Report 5913390-5 (Version None)
Quarter: 2008Q4

REPORT INFORMATION
  Report Type: 
  Country: None (occurrence: None)
  Receive Date: 20081009
  Receipt Date: 20081003
  Transmission Date: 20090506
  Serious: Yes (Other)
  Sender: FDA-Public Use
  Company Number: PHHY2008NL23485

PATIENT
  Sex: Male
  Weight: 72 kg

DRUGS (4)
  1. DESFERAL INF. [Suspect]
     Indication: BLOOD IRON INCREASED
     Dosage: 500 MG, TIMES PER 55 MG/KG
     Dates: start: 20080721, end: 20080731
  2. ALLOPURINOL [Concomitant]
     Dosage: 1DD 300 MG
     Dates: start: 20080702
  3. FASTURTEC [Concomitant]
     Dosage: 1.5 MG / 1 ML, TIMES PER 0.2 MG / KG
     Dates: start: 20080718, end: 20080804
  4. CEFTAZIDIME [Concomitant]
     Dosage: 1 DD 1 G
     Dates: start: 20080714, end: 20080717

REACTIONS (1)
  - MACULAR OEDEMA [None]
